FAERS Safety Report 18928874 (Version 1)
Quarter: 2021Q1

REPORT INFORMATION
  Report Type: Spontaneous
  Country: CN (occurrence: CN)
  Receive Date: 20210223
  Receipt Date: 20210223
  Transmission Date: 20210420
  Serious: Yes (Hospitalization)
  Sender: FDA-Public Use
  Company Number: CN-BAXTER-2021BAX003286

PATIENT
  Age: 15 Year
  Sex: Male
  Weight: 45 kg

DRUGS (14)
  1. DAUNORUBICIN HYDROCHLORIDE. [Suspect]
     Active Substance: DAUNORUBICIN HYDROCHLORIDE
     Dosage: DAUNORUBICIN HYDROCHLORIDE 60 MG + 0.9% SODIUM CHLORIDE 250 ML
     Route: 041
     Dates: start: 20210121, end: 20210121
  2. DAUNORUBICIN HYDROCHLORIDE. [Suspect]
     Active Substance: DAUNORUBICIN HYDROCHLORIDE
     Dosage: DOSE RE?INTRODUCED; DAUNORUBICIN HYDROCHLORIDE + 0.9% SODIUM CHLORIDE
     Route: 041
  3. ENDOXAN [Suspect]
     Active Substance: CYCLOPHOSPHAMIDE
     Indication: ACUTE LYMPHOCYTIC LEUKAEMIA
     Dosage: CYCLOPHOSPHAMIDE 800 MG + 0.9% SODIUM CHLORIDE 250 ML
     Route: 041
     Dates: start: 20210121, end: 20210121
  4. ENDOXAN [Suspect]
     Active Substance: CYCLOPHOSPHAMIDE
     Dosage: DOSE RE?INTRODUCED; CYCLOPHOSPHAMIDE + 0.9% SODIUM CHLORIDE
     Route: 041
  5. 0.9% SODIUM CHLORIDE INJECTION [Suspect]
     Active Substance: SODIUM CHLORIDE
     Dosage: DOSE RE?INTRODUCED; CYCLOPHOSPHAMIDE + 0.9% SODIUM CHLORIDE
     Route: 041
  6. 0.9% SODIUM CHLORIDE INJECTION [Suspect]
     Active Substance: SODIUM CHLORIDE
     Indication: MEDICATION DILUTION
     Dosage: CYCLOPHOSPHAMIDE 800 MG + 0.9% SODIUM CHLORIDE 250 ML
     Route: 041
     Dates: start: 20210121, end: 20210121
  7. 0.9% SODIUM CHLORIDE INJECTION [Suspect]
     Active Substance: SODIUM CHLORIDE
     Dosage: DAUNORUBICIN HYDROCHLORIDE 60 MG + 0.9% SODIUM CHLORIDE 250 ML
     Route: 041
     Dates: start: 20210121, end: 20210121
  8. 0.9% SODIUM CHLORIDE INJECTION [Suspect]
     Active Substance: SODIUM CHLORIDE
     Dosage: DOSE RE?INTRODUCED; DAUNORUBICIN HYDROCHLORIDE + 0.9% SODIUM CHLORIDE
     Route: 041
  9. 0.9% SODIUM CHLORIDE INJECTION [Suspect]
     Active Substance: SODIUM CHLORIDE
     Dosage: VINCRISTINE SULFATE 2 MG + 0.9% SODIUM CHLORIDE 100 ML
     Route: 041
     Dates: start: 20210114, end: 20210128
  10. 0.9% SODIUM CHLORIDE INJECTION [Suspect]
     Active Substance: SODIUM CHLORIDE
     Dosage: DOSE RE?INTRODUCED; VINCRISTINE SULFATE + 0.9% SODIUM CHLORIDE
     Route: 041
  11. VINCRISTINE SULFATE. [Suspect]
     Active Substance: VINCRISTINE SULFATE
     Indication: ACUTE LYMPHOCYTIC LEUKAEMIA
     Dosage: VINCRISTINE SULFATE 2 MG + 0.9% SODIUM CHLORIDE 100 ML
     Route: 041
     Dates: start: 20210114, end: 20210128
  12. 0.9% SODIUM CHLORIDE INJECTION [Suspect]
     Active Substance: SODIUM CHLORIDE
     Dosage: DAUNORUBICIN HYDROCHLORIDE 40 MG + 0.9% SODIUM CHLORIDE 250 ML
     Route: 041
     Dates: start: 20210114, end: 20210114
  13. DAUNORUBICIN HYDROCHLORIDE. [Suspect]
     Active Substance: DAUNORUBICIN HYDROCHLORIDE
     Indication: ACUTE LYMPHOCYTIC LEUKAEMIA
     Dosage: DAUNORUBICIN HYDROCHLORIDE 40 MG + 0.9% SODIUM CHLORIDE 250 ML
     Route: 041
     Dates: start: 20210114, end: 20210114
  14. VINCRISTINE SULFATE. [Suspect]
     Active Substance: VINCRISTINE SULFATE
     Dosage: DOSE RE?INTRODUCED; VINCRISTINE SULFATE + 0.9% SODIUM CHLORIDE
     Route: 041

REACTIONS (1)
  - Myelosuppression [Recovering/Resolving]

NARRATIVE: CASE EVENT DATE: 20210129
